FAERS Safety Report 7013598-4 (Version None)
Quarter: 2010Q3

REPORT INFORMATION
  Report Type: 
  Country: None (occurrence: None)
  Receive Date: 20100924
  Receipt Date: 20100914
  Transmission Date: 20110219
  Serious: Yes (Other)
  Sender: FDA-Public Use
  Company Number: GXKR2010US10422

PATIENT
  Age: 83 Year
  Sex: Male

DRUGS (1)
  1. BRIMONIDINE (NGX) [Suspect]
     Indication: OPEN ANGLE GLAUCOMA
     Dosage: UNK
     Dates: start: 20061001

REACTIONS (9)
  - CONJUNCTIVITIS [None]
  - CORNEAL STAINING [None]
  - EYE DISCHARGE [None]
  - EYE PRURITUS [None]
  - KERATITIS [None]
  - OCULAR HYPERAEMIA [None]
  - OPTIC ATROPHY [None]
  - UVEITIS [None]
  - VISUAL ACUITY REDUCED [None]
